FAERS Safety Report 21896988 (Version 1)
Quarter: 2023Q1

REPORT INFORMATION
  Report Type: Other
  Country: ZA (occurrence: None)
  Receive Date: 20230123
  Receipt Date: 20230123
  Transmission Date: 20230418
  Serious: Yes (Other)
  Sender: FDA-Public Use
  Company Number: ZA-ROCHE-3265577

PATIENT
  Age: 50 Year
  Sex: Female

DRUGS (1)
  1. OCREVUS [Suspect]
     Active Substance: OCRELIZUMAB
     Indication: Relapsing multiple sclerosis
     Dosage: THEREAFTER 600MG EVERY 6 MONTHS
     Route: 041
     Dates: start: 20210827

REACTIONS (13)
  - Myelopathy [Unknown]
  - Demyelination [Unknown]
  - Meningioma [Unknown]
  - Optic neuritis [Unknown]
  - Magnetic resonance imaging head abnormal [Unknown]
  - Magnetic resonance imaging spinal abnormal [Unknown]
  - Spinal osteoarthritis [Unknown]
  - Vertebral foraminal stenosis [Unknown]
  - Intervertebral disc protrusion [Unknown]
  - Encephalomalacia [Unknown]
  - Gliosis [Unknown]
  - Wallerian degeneration [Unknown]
  - Magnetic resonance imaging abnormal [Unknown]
